FAERS Safety Report 6580899-3 (Version None)
Quarter: 2010Q1

REPORT INFORMATION
  Report Type: 
  Country: None (occurrence: None)
  Receive Date: 20100203
  Receipt Date: 20100120
  Transmission Date: 20100710
  Serious: Yes (Other)
  Sender: FDA-Public Use
  Company Number: 2010SP005195

PATIENT
  Age: 57 Year
  Sex: Female

DRUGS (3)
  1. CLARITIN-D [Suspect]
     Indication: NASOPHARYNGITIS
     Dosage: 10 MG; ONCE; PO
     Route: 048
     Dates: start: 20100120
  2. LOTREL [Suspect]
     Indication: DRUG USE FOR UNKNOWN INDICATION
  3. MUCINEX [Concomitant]

REACTIONS (1)
  - SWOLLEN TONGUE [None]
